FAERS Safety Report 13739266 (Version 1)
Quarter: 2017Q3

REPORT INFORMATION
  Report Type: Spontaneous
  Country: US (occurrence: US)
  Receive Date: 20170710
  Receipt Date: 20170710
  Transmission Date: 20171127
  Serious: Yes (Other)
  Sender: FDA-Public Use
  Company Number: US-LEITERS-2023160

PATIENT

DRUGS (2)
  1. LIDOCAINE HCL 1%/PHENYLEPHRINE HCL 1.5% IN STERILE WATER FOR INJECTION [Suspect]
     Active Substance: LIDOCAINE HYDROCHLORIDE\PHENYLEPHRINE HYDROCHLORIDE
     Indication: CATARACT OPERATION
     Route: 050
     Dates: start: 20170622, end: 20170622
  2. MOXIFLOXACIN 1 MG/ML IN STERILE BALANCED SALT SOLUTION [Suspect]
     Active Substance: MOXIFLOXACIN
     Route: 050
     Dates: start: 20170622, end: 20170622

REACTIONS (1)
  - Toxic anterior segment syndrome [Unknown]
